FAERS Safety Report 25688857 (Version 1)
Quarter: 2025Q3

REPORT INFORMATION
  Report Type: Spontaneous
  Country: US (occurrence: US)
  Receive Date: 20250818
  Receipt Date: 20250818
  Transmission Date: 20251020
  Serious: No
  Sender: TEVA
  Company Number: US-TEVA-VS-3362862

PATIENT
  Age: 73 Year
  Sex: Female

DRUGS (1)
  1. TESTOSTERONE [Suspect]
     Active Substance: TESTOSTERONE
     Indication: Menopause
     Route: 061

REACTIONS (6)
  - Hypersensitivity [Unknown]
  - Product use issue [Unknown]
  - Headache [Unknown]
  - Skin irritation [Unknown]
  - Product use in unapproved indication [Unknown]
  - Nausea [Unknown]
